FAERS Safety Report 24556569 (Version 1)
Quarter: 2024Q4

REPORT INFORMATION
  Report Type: Spontaneous
  Country: FI (occurrence: FI)
  Receive Date: 20241028
  Receipt Date: 20241028
  Transmission Date: 20250115
  Serious: Yes (Other)
  Sender: SANOFI AVENTIS
  Company Number: None

PATIENT
  Age: 34 Year
  Sex: Female

DRUGS (19)
  1. LEMTRADA [Suspect]
     Active Substance: ALEMTUZUMAB
     Indication: Multiple sclerosis
     Dosage: 12 MG,QD
     Route: 042
     Dates: start: 20131125
  2. LEMTRADA [Suspect]
     Active Substance: ALEMTUZUMAB
     Dosage: UNK
     Route: 042
     Dates: start: 20141202, end: 20141204
  3. SULFAMETHOXAZOLE\TRIMETHOPRIM [Suspect]
     Active Substance: SULFAMETHOXAZOLE\TRIMETHOPRIM
     Indication: Premedication
     Dosage: 3 DF,QW
     Route: 065
  4. CORTISONE ACETATE [Suspect]
     Active Substance: CORTISONE ACETATE
     Dosage: UNK
     Route: 065
  5. ACYCLOVIR [Concomitant]
     Active Substance: ACYCLOVIR
     Indication: Premedication
     Dosage: 200 MG,BID
     Dates: start: 20131125, end: 20131128
  6. ACYCLOVIR [Concomitant]
     Active Substance: ACYCLOVIR
     Dosage: UNK
     Dates: start: 201512
  7. AERIUS (DESLORATADINE) [Concomitant]
     Active Substance: DESLORATADINE
     Indication: Premedication
     Dosage: 5 MG, QD
     Dates: start: 20131125, end: 20131128
  8. ALPHAGAN P [Concomitant]
     Active Substance: BRIMONIDINE TARTRATE
     Dosage: 1 DROP TWICE A DAY TO THE LEFT EYE.
     Route: 031
  9. VARENICLINE TARTRATE [Concomitant]
     Active Substance: VARENICLINE TARTRATE
     Indication: Tobacco user
     Dosage: UNK
     Dates: start: 201512
  10. COSOPT [Concomitant]
     Active Substance: DORZOLAMIDE HYDROCHLORIDE\TIMOLOL MALEATE
     Indication: Glaucoma
     Dosage: EYE DROPS 1 DROP TO BOTH THE EYES TWICE DAILY
     Route: 031
     Dates: end: 20131128
  11. EBASTINE [Concomitant]
     Active Substance: EBASTINE
     Indication: Premedication
     Dosage: 5 MG, QD
     Dates: start: 20131125, end: 20131128
  12. GILENYA [Concomitant]
     Active Substance: FINGOLIMOD HYDROCHLORIDE
     Dosage: UNK
     Dates: end: 2013
  13. ACETAZOLAMIDE [Concomitant]
     Active Substance: ACETAZOLAMIDE
     Indication: Glaucoma
     Dosage: 2 DF, QD
     Route: 048
  14. ACETAMINOPHEN [Concomitant]
     Active Substance: ACETAMINOPHEN
     Indication: Premedication
     Dosage: 500 MG X 4 TABLETS DAILY
     Route: 048
     Dates: start: 20131125, end: 20131128
  15. PRED [PREDNISOLONE ACETATE] [Concomitant]
     Dosage: 6 DROPS A DAY TO BOTH EYES
     Route: 031
  16. CLONAZEPAM [Concomitant]
     Active Substance: CLONAZEPAM
     Indication: Multiple sclerosis
     Dosage: 0.5 MG, QD
     Route: 048
  17. SOLOMET [METHYLPREDNISOLONE SODIUM SUCCINATE] [Concomitant]
     Indication: Premedication
     Dosage: 1000 MG
     Dates: start: 20131125, end: 20131127
  18. PANTOPRAZOLE SODIUM [Concomitant]
     Active Substance: PANTOPRAZOLE SODIUM
     Indication: Premedication
     Dosage: 40 MG, QD
     Dates: start: 20131125, end: 20131128
  19. TAFLUPROST [Concomitant]
     Active Substance: TAFLUPROST
     Indication: Glaucoma
     Dosage: 1 DROP TWICE A DAY TO BOTH EYES
     Route: 031

REACTIONS (29)
  - Muscular weakness [Not Recovered/Not Resolved]
  - C-reactive protein increased [Not Recovered/Not Resolved]
  - C-reactive protein [Not Recovered/Not Resolved]
  - Platelet count decreased [Recovered/Resolved]
  - Blindness unilateral [Recovered/Resolved]
  - Macular oedema [Unknown]
  - Oral herpes [Unknown]
  - Insomnia [Unknown]
  - Diplopia [Unknown]
  - Restlessness [Unknown]
  - Vitreous haemorrhage [Not Recovered/Not Resolved]
  - Bradycardia [Unknown]
  - Uveitis [Unknown]
  - Neurological symptom [Unknown]
  - Muscle twitching [Unknown]
  - Pneumonia pneumococcal [Recovering/Resolving]
  - Feeling hot [Unknown]
  - Hyperhidrosis [Unknown]
  - Graves^ disease [Unknown]
  - Endocrine ophthalmopathy [Not Recovered/Not Resolved]
  - Myalgia [Recovered/Resolved]
  - Urinary tract infection [Recovered/Resolved]
  - Pain [Unknown]
  - Fatigue [Not Recovered/Not Resolved]
  - Fungal infection [Unknown]
  - Rash [Recovering/Resolving]
  - Headache [Recovered/Resolved]
  - Multiple sclerosis [Unknown]
  - Eye disorder [Unknown]

NARRATIVE: CASE EVENT DATE: 20131125
